FAERS Safety Report 5713318-7 (Version None)
Quarter: 2008Q2

REPORT INFORMATION
  Report Type: 
  Country: None (occurrence: None)
  Receive Date: 20080418
  Receipt Date: 20080410
  Transmission Date: 20081010
  Serious: Yes (Hospitalization)
  Sender: FDA-Public Use
  Company Number: DSU-2008-00528

PATIENT
  Sex: Female

DRUGS (2)
  1. BENICAR HCT [Suspect]
     Indication: DRUG USE FOR UNKNOWN INDICATION
     Dosage: 40/25 MG (QD), PER ORAL
     Route: 048
  2. LOTREL (AMLODIPINE, BENAZEPRIL HYDROCHLORIDE) (CAPSULE) (AMLODIPINE, B [Concomitant]

REACTIONS (2)
  - BLOOD SODIUM DECREASED [None]
  - CONVULSION [None]
